FAERS Safety Report 9558767 (Version 5)
Quarter: 2014Q2

REPORT INFORMATION
  Report Type: Report from Study
  Country: BE (occurrence: BE)
  Receive Date: 20130926
  Receipt Date: 20140404
  Transmission Date: 20141212
  Serious: Yes (Hospitalization)
  Sender: FDA-Public Use
  Company Number: BE-ABBVIE-13P-013-1122826-00

PATIENT
  Age: 52 Year
  Sex: Female
  Weight: 90 kg

DRUGS (15)
  1. HUMIRA [Suspect]
     Indication: UVEITIS
     Route: 058
     Dates: start: 20111122
  2. PREDNISOLONE [Concomitant]
     Indication: PRODUCT USED FOR UNKNOWN INDICATION
     Route: 048
     Dates: start: 20111122, end: 20111208
  3. PREDNISOLONE [Concomitant]
     Route: 048
     Dates: start: 20111209, end: 20120209
  4. PREDNISOLONE [Concomitant]
     Route: 048
     Dates: start: 20120210, end: 20120301
  5. PREDNISOLONE [Concomitant]
     Route: 048
     Dates: start: 20120302, end: 20120324
  6. PREDNISOLONE [Concomitant]
     Route: 048
     Dates: start: 20120325, end: 20120621
  7. PREDNISOLONE [Concomitant]
     Route: 048
     Dates: start: 20120622, end: 20120802
  8. PREDNISOLONE [Concomitant]
     Route: 048
     Dates: start: 20120803, end: 20121025
  9. PREDNISOLONE [Concomitant]
     Route: 048
     Dates: start: 20121026, end: 20130103
  10. PREDNISOLONE [Concomitant]
     Route: 048
     Dates: start: 20130104, end: 20130221
  11. PREDNISOLONE [Concomitant]
     Route: 048
     Dates: start: 20130222, end: 20130718
  12. STEOVIT D3 [Concomitant]
     Indication: OSTEOPOROSIS
     Route: 048
     Dates: start: 201107, end: 20130929
  13. STEOVIT D3 [Concomitant]
     Indication: PROPHYLAXIS
     Route: 048
     Dates: start: 20130930
  14. BRUFEN [Concomitant]
     Indication: ARTHRALGIA
     Route: 048
     Dates: start: 20130630, end: 20130716
  15. CONTRAMAL [Concomitant]
     Indication: ARTHRALGIA
     Route: 048
     Dates: start: 201307, end: 20130716

REACTIONS (1)
  - Synovitis [Not Recovered/Not Resolved]
